FAERS Safety Report 7833152-1 (Version None)
Quarter: 2011Q4

REPORT INFORMATION
  Report Type: 
  Country: None (occurrence: None)
  Receive Date: 20111024
  Receipt Date: 20111013
  Transmission Date: 20120403
  Serious: Yes (Other)
  Sender: FDA-Public Use
  Company Number: DK-JNJFOC-20110812301

PATIENT
  Sex: Male
  Weight: 76 kg

DRUGS (2)
  1. PALIPERIDONE [Suspect]
     Indication: SCHIZOPHRENIA, PARANOID TYPE
     Route: 030
  2. RISPERDAL CONSTA [Suspect]
     Indication: SCHIZOPHRENIA, PARANOID TYPE
     Route: 030

REACTIONS (22)
  - ORTHOSTATIC HYPOTENSION [None]
  - CONSTIPATION [None]
  - TREMOR [None]
  - DRUG INTOLERANCE [None]
  - GYNAECOMASTIA [None]
  - URINARY INCONTINENCE [None]
  - INDIFFERENCE [None]
  - HEADACHE [None]
  - WEIGHT INCREASED [None]
  - DIZZINESS POSTURAL [None]
  - APTYALISM [None]
  - VOMITING [None]
  - DYSTONIA [None]
  - HYPERKINESIA [None]
  - SEXUAL DYSFUNCTION [None]
  - ASTHENIA [None]
  - DEPRESSION [None]
  - AKATHISIA [None]
  - PARKINSONISM [None]
  - URINARY TRACT DISORDER [None]
  - NAUSEA [None]
  - SEDATION [None]
